FAERS Safety Report 20983321 (Version 1)
Quarter: 2022Q2

REPORT INFORMATION
  Report Type: Report from Study
  Country: JP (occurrence: JP)
  Receive Date: 20220620
  Receipt Date: 20220620
  Transmission Date: 20220721
  Serious: Yes (Death, Other)
  Sender: FDA-Public Use
  Company Number: JP-ONO-2022JP000922

PATIENT
  Age: 70 Year
  Sex: Male
  Weight: 60.2 kg

DRUGS (8)
  1. BMS-986310 [Suspect]
     Active Substance: BMS-986310
     Indication: Rectal cancer
     Route: 048
     Dates: start: 20211022, end: 20211202
  2. REGORAFENIB [Suspect]
     Active Substance: REGORAFENIB
     Indication: Rectal cancer
     Dosage: 120 MILLIGRAM, EVERYDAY, 3 WEEKS ON/ 1 WEEK OFF
     Route: 048
     Dates: start: 20211215, end: 20220104
  3. ANAMORELIN HYDROCHLORIDE [Concomitant]
     Active Substance: ANAMORELIN HYDROCHLORIDE
     Indication: Decreased appetite
     Route: 048
     Dates: start: 20210820, end: 20220106
  4. CALONAL [Concomitant]
     Active Substance: ACETAMINOPHEN
     Indication: Cancer pain
     Route: 048
     Dates: start: 20211001, end: 20220117
  5. LOXOPROFEN SODIUM [Concomitant]
     Active Substance: LOXOPROFEN SODIUM
     Indication: Cancer pain
     Dosage: 60 MILLIGRAM, Q8H
     Route: 048
     Dates: start: 20211215, end: 20220116
  6. VONOPRAZAN FUMARATE [Concomitant]
     Active Substance: VONOPRAZAN FUMARATE
     Indication: Gastritis prophylaxis
     Dosage: 20 MILLIGRAM, QD
     Route: 048
     Dates: start: 20211215, end: 20220116
  7. UREA [Concomitant]
     Active Substance: UREA
     Indication: Prophylaxis
     Route: 061
     Dates: start: 20211215
  8. CLOBETASOL [Concomitant]
     Active Substance: CLOBETASOL
     Indication: Palmar-plantar erythrodysaesthesia syndrome
     Route: 061
     Dates: start: 20211222

REACTIONS (1)
  - Hepatic function abnormal [Fatal]

NARRATIVE: CASE EVENT DATE: 20220111
